FAERS Safety Report 6387745-1 (Version None)
Quarter: 2009Q4

REPORT INFORMATION
  Report Type: 
  Country: None (occurrence: None)
  Receive Date: 20091005
  Receipt Date: 20090921
  Transmission Date: 20100525
  Serious: Yes (Hospitalization)
  Sender: FDA-Public Use
  Company Number: PHHY2009CA35632

PATIENT
  Sex: Male

DRUGS (3)
  1. EXJADE [Suspect]
     Indication: MYELODYSPLASTIC SYNDROME
     Dosage: 2250 MG, QD
     Route: 048
     Dates: start: 20090816
  2. EXJADE [Suspect]
     Indication: IRON OVERLOAD
  3. LOMOTIL [Concomitant]

REACTIONS (7)
  - ASTHENIA [None]
  - CONSTIPATION [None]
  - DECREASED APPETITE [None]
  - DIARRHOEA [None]
  - LETHARGY [None]
  - TRANSFUSION REACTION [None]
  - WEIGHT DECREASED [None]
